FAERS Safety Report 7935624-8 (Version None)
Quarter: 2011Q4

REPORT INFORMATION
  Report Type: 
  Country: None (occurrence: None)
  Receive Date: 20111118
  Receipt Date: 20111115
  Transmission Date: 20120403
  Serious: Yes (Hospitalization)
  Sender: FDA-Public Use
  Company Number: 1000024935

PATIENT
  Age: 78 Year
  Sex: Female

DRUGS (10)
  1. RIVOTRIL (CLONAZEPAM) (CLONAZEPAM) [Concomitant]
  2. MEMANTINE HYDROCHLORIDE [Suspect]
     Indication: DEMENTIA ALZHEIMER'S TYPE
     Dates: end: 20110722
  3. DEPAMIDE (VALPROMIDE) [Suspect]
     Dates: end: 20110722
  4. ESCITALOPRAM (ESCITALOPRAM OXALATE) (TABLETS) (ESCITALOPRAM OXALATE) [Concomitant]
  5. TANAKAN (GINKGO BILOBA EXTRACT) [Suspect]
     Indication: DEMENTIA ALZHEIMER'S TYPE
     Dosage: ORAL
     Route: 048
     Dates: end: 20110722
  6. CALCITRIOL [Suspect]
     Indication: VITAMIN D DEFICIENCY
     Dosage: ORAL
     Route: 048
     Dates: end: 20110722
  7. COUMADINE (WARFARIN SODIUM) (WARFARIN SODIUM) [Concomitant]
  8. CACIT VITAMINE D3 (CALCIUM CARBONATE, COLECALCIFEROL) [Suspect]
     Indication: CALCIUM DEFICIENCY
     Dosage: ORAL
     Route: 048
     Dates: end: 20110722
  9. DIOSMINE (DIOSMIN) [Suspect]
     Indication: SENSATION OF HEAVINESS
     Dosage: ORAL
     Route: 048
     Dates: end: 20110722
  10. GALANTAMINE HYDROBROMIDE [Suspect]
     Indication: DEMENTIA ALZHEIMER'S TYPE
     Dosage: ORAL
     Route: 048
     Dates: end: 20110722

REACTIONS (2)
  - HAEMOLYTIC ANAEMIA [None]
  - ASTHENIA [None]
